FAERS Safety Report 17878348 (Version 1)
Quarter: 2020Q2

REPORT INFORMATION
  Report Type: Spontaneous
  Country: US (occurrence: US)
  Receive Date: 20200610
  Receipt Date: 20200610
  Transmission Date: 20200714
  Serious: No
  Sender: FDA-Public Use
  Company Number: US-AUROBINDO-AUR-APL-2020-019355

PATIENT
  Sex: Male
  Weight: 113 kg

DRUGS (1)
  1. ESOMEPRAZOLE MAGNESIUM DELAYED-RELEASE CAPSULES 20 MG [Suspect]
     Active Substance: ESOMEPRAZOLE MAGNESIUM
     Indication: PRODUCT USED FOR UNKNOWN INDICATION
     Dosage: UNK
     Route: 065

REACTIONS (4)
  - Accidental overdose [Unknown]
  - Product packaging issue [Unknown]
  - Accidental exposure to product packaging [Unknown]
  - Product odour abnormal [Unknown]

NARRATIVE: CASE EVENT DATE: 20200409
